FAERS Safety Report 13323997 (Version 1)
Quarter: 2017Q1

REPORT INFORMATION
  Report Type: Report from Study
  Country: None (occurrence: BR)
  Receive Date: 20170310
  Receipt Date: 20170310
  Transmission Date: 20170428
  Serious: Yes (Other)
  Sender: FDA-Public Use
  Company Number: BR-ABBVIE-17P-020-1902699-00

PATIENT
  Sex: Female
  Weight: 47 kg

DRUGS (6)
  1. SYNTHROID [Suspect]
     Active Substance: LEVOTHYROXINE SODIUM
     Route: 065
  2. SYNTHROID [Suspect]
     Active Substance: LEVOTHYROXINE SODIUM
     Indication: HYPOTHYROIDISM
     Dosage: FOR 8 YEARS
     Route: 065
     Dates: start: 2000
  3. SYNTHROID [Suspect]
     Active Substance: LEVOTHYROXINE SODIUM
     Route: 065
  4. SYNTHROID [Suspect]
     Active Substance: LEVOTHYROXINE SODIUM
     Indication: THYROIDECTOMY
     Route: 065
  5. SYNTHROID [Suspect]
     Active Substance: LEVOTHYROXINE SODIUM
     Route: 065
  6. SYNTHROID [Suspect]
     Active Substance: LEVOTHYROXINE SODIUM
     Route: 048

REACTIONS (9)
  - Hernia [Unknown]
  - Drug administration error [Unknown]
  - Urinary tract infection [Recovering/Resolving]
  - Gastrooesophageal reflux disease [Unknown]
  - Gastritis [Unknown]
  - Thyroid neoplasm [Unknown]
  - Blood cholesterol increased [Not Recovered/Not Resolved]
  - Thyroid cyst [Unknown]
  - Abdominal pain upper [Unknown]
